FAERS Safety Report 10561289 (Version 1)
Quarter: 2014Q4

REPORT INFORMATION
  Report Type: Spontaneous
  Country: BR (occurrence: BR)
  Receive Date: 20141103
  Receipt Date: 20141103
  Transmission Date: 20150529
  Serious: Yes (Death)
  Sender: FDA-Public Use
  Company Number: BR-CUBIST PHARMACEUTICALS, INC.-2014CBST001478

PATIENT

DRUGS (2)
  1. CUBICIN [Suspect]
     Active Substance: DAPTOMYCIN
     Indication: STAPHYLOCOCCAL INFECTION
     Dosage: UNK UNK, UNK
     Route: 042
     Dates: start: 20120312, end: 2012
  2. CUBICIN [Suspect]
     Active Substance: DAPTOMYCIN
     Indication: DEVICE RELATED INFECTION

REACTIONS (4)
  - Haemorrhagic stroke [Fatal]
  - Pneumonia [Fatal]
  - Acinetobacter infection [Fatal]
  - Antimicrobial susceptibility test resistant [Unknown]

NARRATIVE: CASE EVENT DATE: 2012
